FAERS Safety Report 8392913-3 (Version None)
Quarter: 2012Q2

REPORT INFORMATION
  Report Type: 
  Country: None (occurrence: None)
  Receive Date: 20120529
  Receipt Date: 20110516
  Transmission Date: 20120825
  Serious: No
  Sender: FDA-Public Use
  Company Number: US-MYLANLABS-2011S1010186

PATIENT
  Age: 67 Year
  Sex: Female

DRUGS (3)
  1. LOPRESSOR [Concomitant]
     Indication: BLOOD PRESSURE INCREASED
  2. NIFEDIPINE [Suspect]
     Indication: BLOOD PRESSURE INCREASED
     Route: 048
     Dates: start: 20110201
  3. LASIX [Concomitant]
     Indication: FLUID RETENTION

REACTIONS (2)
  - MUSCLE SPASMS [None]
  - FATIGUE [None]
